FAERS Safety Report 9168787 (Version 1)
Quarter: 2013Q1

REPORT INFORMATION
  Report Type: Spontaneous
  Country: US (occurrence: US)
  Receive Date: 20130318
  Receipt Date: 20130318
  Transmission Date: 20140127
  Serious: No
  Sender: FDA-Public Use
  Company Number: US-TEVA-392401USA

PATIENT
  Sex: Female

DRUGS (1)
  1. COPAXONE [Suspect]
     Dates: end: 20130219

REACTIONS (3)
  - Swollen tongue [Unknown]
  - Face oedema [Unknown]
  - Pruritus [Unknown]
